FAERS Safety Report 6592749-X (Version None)
Quarter: 2010Q1

REPORT INFORMATION
  Report Type: 
  Country: None (occurrence: None)
  Receive Date: 20100212
  Receipt Date: 20091119
  Transmission Date: 20100710
  Serious: Yes (Death)
  Sender: FDA-Public Use
  Company Number: 002467

PATIENT
  Sex: Female

DRUGS (12)
  1. VIMPAT [Suspect]
     Indication: EPILEPSY
     Dosage: 3 TIMES PER 11 DF
     Dates: start: 20090615
  2. INFLUENZA (FOCETRIA) (NOT SPECIFIED) [Suspect]
     Indication: INFLUENZA
     Dosage: 1 TIMES PER 11 DF
     Dates: start: 20091105
  3. LEVETIRACETAM [Concomitant]
  4. TRIAMTERENE [Concomitant]
  5. AERIUS [Concomitant]
  6. LACTULOSE [Concomitant]
  7. HYDROCHLOROTHIAZIDE [Concomitant]
  8. TRILEPTAL [Concomitant]
  9. RISPERDAL [Concomitant]
  10. CERAZETTE [Concomitant]
  11. RIVOTRIL [Concomitant]
  12. OXAZEPAM [Concomitant]

REACTIONS (1)
  - PERIPHERAL CIRCULATORY FAILURE [None]
